FAERS Safety Report 13400763 (Version 1)
Quarter: 2017Q2

REPORT INFORMATION
  Report Type: Report from Study
  Country: US (occurrence: US)
  Receive Date: 20170404
  Receipt Date: 20170404
  Transmission Date: 20170830
  Serious: Yes (Other)
  Sender: FDA-Public Use
  Company Number: PHHO2010US11267

PATIENT
  Age: 83 Year
  Sex: Male
  Weight: 81.36 kg

DRUGS (8)
  1. LEXAPRO [Concomitant]
     Active Substance: ESCITALOPRAM OXALATE
  2. TRIAMTERENE. [Concomitant]
     Active Substance: TRIAMTERENE
  3. ASPIRIN. [Concomitant]
     Active Substance: ASPIRIN
  4. COMPARATOR BICALUTAMIDE [Suspect]
     Active Substance: BICALUTAMIDE
     Indication: PROSTATE CANCER
     Dosage: 50 MG, UNK
     Route: 048
     Dates: start: 20100621, end: 20100715
  5. EVEROLIMUS [Suspect]
     Active Substance: EVEROLIMUS
     Indication: PROSTATE CANCER
     Dosage: 10 MG, QD
     Route: 048
     Dates: start: 20100621, end: 20100715
  6. LIPITOR [Concomitant]
     Active Substance: ATORVASTATIN CALCIUM
  7. NO TREATMENT RECEIVED [Suspect]
     Active Substance: UNSPECIFIED INGREDIENT
     Indication: PROSTATE CANCER
     Dosage: NO TREATMENT
     Route: 065
  8. COUMADIN [Concomitant]
     Active Substance: WARFARIN SODIUM

REACTIONS (12)
  - Diabetes mellitus [Unknown]
  - Dehydration [Unknown]
  - Polyuria [Unknown]
  - Dry mouth [Unknown]
  - Pulmonary mass [Unknown]
  - Thyroid mass [Unknown]
  - Polydipsia [Unknown]
  - Pollakiuria [Unknown]
  - Blood creatinine increased [Unknown]
  - Rash [Unknown]
  - Fatigue [Unknown]
  - Hyperglycaemia [Unknown]

NARRATIVE: CASE EVENT DATE: 20100715
